FAERS Safety Report 8614360-9 (Version None)
Quarter: 2012Q3

REPORT INFORMATION
  Report Type: 
  Country: None (occurrence: None)
  Receive Date: 20120823
  Receipt Date: 20120813
  Transmission Date: 20120928
  Serious: Yes (Hospitalization)
  Sender: FDA-Public Use
  Company Number: GR-009507513-1110USA02988

PATIENT

DRUGS (5)
  1. CYANOCOBALAMIN (+) PYRIDOXINE (+) THIAMINE [Concomitant]
  2. HYDROCHLOROTHIAZIDE [Concomitant]
     Indication: HYPERTENSION
  3. QUINAPRIL HYDROCHLORIDE [Concomitant]
     Indication: HYPERTENSION
  4. JANUMET [Suspect]
     Indication: TYPE 2 DIABETES MELLITUS
     Dosage: 2000/100
     Route: 048
  5. SERTRALINE HYDROCHLORIDE [Concomitant]

REACTIONS (1)
  - PEMPHIGOID [None]
